FAERS Safety Report 21487147 (Version 1)
Quarter: 2022Q4

REPORT INFORMATION
  Report Type: Report from Study
  Country: IT (occurrence: IT)
  Receive Date: 20221020
  Receipt Date: 20221020
  Transmission Date: 20230113
  Serious: Yes (Other)
  Sender: FDA-Public Use
  Company Number: IT-UCBSA-2022059669

PATIENT

DRUGS (3)
  1. BRIVARACETAM [Suspect]
     Active Substance: BRIVARACETAM
     Indication: Post stroke epilepsy
     Dosage: 100 MILLIGRAM
  2. BRIVARACETAM [Suspect]
     Active Substance: BRIVARACETAM
     Dosage: 125 MILLIGRAM
  3. BRIVARACETAM [Suspect]
     Active Substance: BRIVARACETAM
     Dosage: 100 MILLIGRAM

REACTIONS (16)
  - Anxiety [Unknown]
  - Aggression [Unknown]
  - Memory impairment [Unknown]
  - Headache [Unknown]
  - Nervousness [Unknown]
  - Agitation [Unknown]
  - Constipation [Unknown]
  - Dizziness [Unknown]
  - Fatigue [Unknown]
  - Mood altered [Unknown]
  - Sleep disorder [Unknown]
  - Somnolence [Unknown]
  - Vertigo [Unknown]
  - Drug ineffective [Unknown]
  - Drug intolerance [Unknown]
  - Product use in unapproved indication [Unknown]
